FAERS Safety Report 18042948 (Version 1)
Quarter: 2020Q3

REPORT INFORMATION
  Report Type: Spontaneous
  Country: US (occurrence: US)
  Receive Date: 20200718
  Receipt Date: 20200718
  Transmission Date: 20201103
  Serious: Yes (Other)
  Sender: FDA-Public Use
  Company Number: None

PATIENT
  Age: 62 Year
  Sex: Female
  Weight: 88.4 kg

DRUGS (17)
  1. INSULIN GLARGINE 40 UNITS SC BEDTIME [Concomitant]
     Dates: start: 20200716
  2. ROCURONIUM CONTINUOUS IV INFUSION [Concomitant]
     Dates: start: 20200717
  3. SERTRALINE 50 MG PO DAILY [Concomitant]
     Dates: start: 20200708
  4. THIAMINE MONONITRATE 100 MG PO DAILY [Concomitant]
     Dates: start: 20200629
  5. ENOXAPARIN 90 MG SC Q12H [Concomitant]
     Dates: start: 20200717
  6. NOREPINEPHINE IV CONTINUOUS INFUSION [Concomitant]
     Dates: start: 20200717
  7. ZINC SULFATE 220 MG PO BID [Concomitant]
     Dates: start: 20200716
  8. REMDESIVIR. [Suspect]
     Active Substance: REMDESIVIR
     Indication: COVID-19
     Route: 040
     Dates: start: 20200717, end: 20200718
  9. FAMOTIDINE 20 MG IV/PO Q12H [Concomitant]
     Dates: start: 20200717
  10. FENTANYL IV CONTINUOUS INFUSION [Concomitant]
     Dates: start: 20200717
  11. ACETAMINOPHNE 650MG Q4H PRN [Concomitant]
     Dates: start: 20200717
  12. METHYLPREDNISOLONE 40 MG IV Q6H [Concomitant]
     Dates: start: 20200718
  13. MIDAZOLAM IV CONTINUOUS INFUSION [Concomitant]
     Dates: start: 20200717
  14. BENZONATATE 200 MG PO Q8H [Concomitant]
     Dates: start: 20200629
  15. ASCORBIC ACID 1000 MG PO BID [Concomitant]
     Dates: start: 20200629
  16. ATORVASTATIN 80 MG ONCE DAILY [Concomitant]
     Dates: start: 20200629
  17. DOCUSATE 200 MG PO BID [Concomitant]
     Dates: start: 20200628

REACTIONS (1)
  - Alanine aminotransferase increased [None]

NARRATIVE: CASE EVENT DATE: 20200718
